FAERS Safety Report 16326587 (Version 3)
Quarter: 2022Q1

REPORT INFORMATION
  Report Type: Spontaneous
  Country: US (occurrence: US)
  Receive Date: 20190517
  Receipt Date: 20220109
  Transmission Date: 20220424
  Serious: Yes (Other)
  Sender: FDA-Public Use
  Company Number: US-GILEAD-2019-0407772

PATIENT
  Age: 57 Year
  Sex: Male
  Weight: 107.5 kg

DRUGS (43)
  1. VIREAD [Suspect]
     Active Substance: TENOFOVIR DISOPROXIL FUMARATE
     Indication: HIV infection
     Dosage: UNK
     Route: 048
     Dates: start: 20090421, end: 201302
  2. VIREAD [Suspect]
     Active Substance: TENOFOVIR DISOPROXIL FUMARATE
     Dosage: UNK
     Route: 065
     Dates: start: 200704, end: 201302
  3. ATRIPLA [Suspect]
     Active Substance: EFAVIRENZ\EMTRICITABINE\TENOFOVIR DISOPROXIL FUMARATE
     Indication: HIV infection
     Dosage: UNK
     Route: 048
     Dates: start: 2009, end: 2013
  4. COMBIVIR [Concomitant]
     Active Substance: LAMIVUDINE\ZIDOVUDINE
  5. INTELENCE [Concomitant]
     Active Substance: ETRAVIRINE
  6. ISENTRESS [Concomitant]
     Active Substance: RALTEGRAVIR POTASSIUM
  7. SELZENTRY [Concomitant]
     Active Substance: MARAVIROC
  8. XANAX [Concomitant]
     Active Substance: ALPRAZOLAM
  9. NORVASC [Concomitant]
     Active Substance: AMLODIPINE BESYLATE
  10. ASPIRIN [Concomitant]
     Active Substance: ASPIRIN
  11. ASCORBIC ACID [Concomitant]
     Active Substance: ASCORBIC ACID
  12. ATORVASTATIN [Concomitant]
     Active Substance: ATORVASTATIN
  13. BASAGLAR [Concomitant]
     Active Substance: INSULIN GLARGINE
  14. TUSSIONEX PENNKINETIC [Concomitant]
     Active Substance: CHLORPHENIRAMINE\HYDROCODONE
  15. CATAPRES [Concomitant]
     Active Substance: CLONIDINE HYDROCHLORIDE
  16. PLAVIX [Concomitant]
     Active Substance: CLOPIDOGREL BISULFATE
  17. COUMADIN [Concomitant]
     Active Substance: WARFARIN SODIUM
  18. DOXYCYCLINE [Concomitant]
     Active Substance: DOXYCYCLINE
  19. ZETIA [Concomitant]
     Active Substance: EZETIMIBE
  20. TRICOR [Concomitant]
     Active Substance: FENOFIBRATE
  21. DIFLUCAN [Concomitant]
     Active Substance: FLUCONAZOLE
  22. LASIX [Concomitant]
     Active Substance: FUROSEMIDE
  23. NEURONTIN [Concomitant]
     Active Substance: GABAPENTIN
  24. GLIPIZIDE [Concomitant]
     Active Substance: GLIPIZIDE
  25. HUMALOG [Concomitant]
     Active Substance: INSULIN LISPRO
  26. VASCEPA [Concomitant]
     Active Substance: ICOSAPENT ETHYL
  27. INSULIN GLARGINE [Concomitant]
     Active Substance: INSULIN GLARGINE
  28. LISINOPRIL [Concomitant]
     Active Substance: LISINOPRIL
  29. COZAAR [Concomitant]
     Active Substance: LOSARTAN POTASSIUM
  30. ENOXAPARIN SODIUM [Concomitant]
     Active Substance: ENOXAPARIN SODIUM
  31. VITAMIN B [Concomitant]
     Active Substance: VITAMIN B
  32. ROBAXIN [Concomitant]
     Active Substance: METHOCARBAMOL
  33. REMERON [Concomitant]
     Active Substance: MIRTAZAPINE
  34. VITAMINS [Concomitant]
     Active Substance: VITAMINS
  35. LOVAZA [Concomitant]
     Active Substance: OMEGA-3-ACID ETHYL ESTERS
  36. PRAVASTATIN [Concomitant]
     Active Substance: PRAVASTATIN
  37. PREGABALIN [Concomitant]
     Active Substance: PREGABALIN
  38. FLOMAX [Concomitant]
     Active Substance: TAMSULOSIN HYDROCHLORIDE
  39. NITROSTAT [Concomitant]
     Active Substance: NITROGLYCERIN
  40. CYMBALTA [Concomitant]
     Active Substance: DULOXETINE HYDROCHLORIDE
  41. MICROZIDE [Concomitant]
     Active Substance: HYDROCHLOROTHIAZIDE
  42. TOPROL XL [Concomitant]
     Active Substance: METOPROLOL SUCCINATE
  43. DELTASONE [Concomitant]
     Active Substance: PREDNISONE

REACTIONS (26)
  - Chronic kidney disease [Not Recovered/Not Resolved]
  - Foot fracture [Recovered/Resolved]
  - Osteoporosis [Not Recovered/Not Resolved]
  - Renal failure [Not Recovered/Not Resolved]
  - Emotional distress [Not Recovered/Not Resolved]
  - Anhedonia [Not Recovered/Not Resolved]
  - Economic problem [Not Recovered/Not Resolved]
  - Osteopenia [Not Recovered/Not Resolved]
  - Renal pain [Unknown]
  - Back pain [Not Recovered/Not Resolved]
  - Arthralgia [Not Recovered/Not Resolved]
  - Depression [Not Recovered/Not Resolved]
  - Pain [Not Recovered/Not Resolved]
  - Pain in extremity [Unknown]
  - Bone density decreased [Unknown]
  - Metabolic disorder [Unknown]
  - Tibia fracture [Recovered/Resolved]
  - Physical disability [Not Recovered/Not Resolved]
  - Fracture [Not Recovered/Not Resolved]
  - Swelling [Not Recovered/Not Resolved]
  - Gait disturbance [Not Recovered/Not Resolved]
  - Stress fracture [Unknown]
  - Anxiety [Not Recovered/Not Resolved]
  - Fatigue [Not Recovered/Not Resolved]
  - Pollakiuria [Not Recovered/Not Resolved]
  - Loss of personal independence in daily activities [Not Recovered/Not Resolved]

NARRATIVE: CASE EVENT DATE: 20111101
